FAERS Safety Report 5491045-1 (Version None)
Quarter: 2007Q4

REPORT INFORMATION
  Report Type: 
  Country: None (occurrence: None)
  Receive Date: 20071019
  Receipt Date: 20071009
  Transmission Date: 20080405
  Serious: Yes (Hospitalization, Disabling, Other)
  Sender: FDA-Public Use
  Company Number: US-PFIZER INC-2006016557

PATIENT
  Sex: Male
  Weight: 88.5 kg

DRUGS (3)
  1. DILANTIN [Suspect]
     Indication: CONVULSION
     Route: 048
  2. DEPAKOTE [Suspect]
     Indication: CONVULSION
     Dosage: FREQ:UNKNOWN
     Route: 065
  3. PHENYTOIN [Suspect]
     Indication: CONVULSION
     Dosage: FREQ:UNKNOWN
     Route: 065

REACTIONS (9)
  - BODY HEIGHT DECREASED [None]
  - CONVULSION [None]
  - ERYTHEMA [None]
  - OEDEMA PERIPHERAL [None]
  - OSTEOPENIA [None]
  - OSTEOPOROSIS [None]
  - PHARMACEUTICAL PRODUCT COMPLAINT [None]
  - THERAPEUTIC AGENT TOXICITY [None]
  - WEIGHT INCREASED [None]
